FAERS Safety Report 4962995-7 (Version None)
Quarter: 2006Q2

REPORT INFORMATION
  Report Type: 
  Country: None (occurrence: None)
  Receive Date: 20060405
  Receipt Date: 20060327
  Transmission Date: 20061013
  Serious: Yes (Hospitalization)
  Sender: FDA-Public Use
  Company Number: CZ-JNJFOC-20060306951

PATIENT
  Sex: Female

DRUGS (7)
  1. REMICADE [Suspect]
     Indication: RHEUMATOID ARTHRITIS
     Route: 042
  2. PREDNISON [Concomitant]
     Route: 065
  3. METHOTREXATE [Concomitant]
     Route: 065
  4. ACIDUM FOLICUM [Concomitant]
     Route: 065
  5. COXTRAL [Concomitant]
     Route: 065
  6. VASOCARDIN [Concomitant]
     Route: 065
  7. LUSOPRESS [Concomitant]
     Route: 065

REACTIONS (1)
  - OVARIAN CYST [None]
